FAERS Safety Report 17004063 (Version 2)
Quarter: 2020Q4

REPORT INFORMATION
  Report Type: Spontaneous
  Country: FI (occurrence: FI)
  Receive Date: 20191107
  Receipt Date: 20201228
  Transmission Date: 20210113
  Serious: Yes (Hospitalization, Other)
  Sender: FDA-Public Use
  Company Number: FI-SA-2019SA303134

PATIENT

DRUGS (2)
  1. LEMTRADA [Suspect]
     Active Substance: ALEMTUZUMAB
     Indication: MULTIPLE SCLEROSIS
     Dosage: UNK, UNK
     Route: 042
     Dates: start: 20151130, end: 2015
  2. LEMTRADA [Suspect]
     Active Substance: ALEMTUZUMAB
     Dosage: UNK, UNK
     Route: 042
     Dates: start: 2016, end: 2016

REACTIONS (5)
  - Pulmonary sarcoidosis [Not Recovered/Not Resolved]
  - Hypothyroidism [Not Recovered/Not Resolved]
  - Sarcoidosis [Not Recovered/Not Resolved]
  - Cardiac sarcoidosis [Not Recovered/Not Resolved]
  - Hypercalcaemia [Not Recovered/Not Resolved]
